FAERS Safety Report 19187191 (Version 5)
Quarter: 2021Q2

REPORT INFORMATION
  Report Type: Other
  Country: JP (occurrence: JP)
  Receive Date: 20210427
  Receipt Date: 20210604
  Transmission Date: 20210717
  Serious: Yes (Hospitalization, Other)
  Sender: FDA-Public Use
  Company Number: JP-ROCHE-2813728

PATIENT
  Age: 4 Year
  Sex: Male
  Weight: 13.15 kg

DRUGS (4)
  1. EMICIZUMAB. [Suspect]
     Active Substance: EMICIZUMAB
     Indication: HAEMOPHILIA A WITH ANTI FACTOR VIII
     Route: 058
     Dates: start: 20180709, end: 20180730
  2. EMICIZUMAB. [Suspect]
     Active Substance: EMICIZUMAB
     Route: 058
     Dates: start: 20180806
  3. EMICIZUMAB. [Suspect]
     Active Substance: EMICIZUMAB
     Route: 058
     Dates: end: 20210427
  4. ELOCTATE [Concomitant]
     Active Substance: (1-743)-(1638-2332)-BLOOD-COAGULATION FACTOR VIII (SYNTHETIC HUMAN) FUSION PROTEIN WITH IMMUNOGLOBULIN G1 (SYNTHETIC HUMAN FC DOMAIN FRAGMENT), (1444-6^),(1447-9^)-BIS(DISULFIDE) WITH IMMUNOGLOBULIN G1 (SYNTHETIC HUMAN FC DOMAIN FRAGMENT)
     Route: 042
     Dates: start: 20180731

REACTIONS (14)
  - Seizure [Unknown]
  - Influenza [Unknown]
  - Ganglioneuroblastoma [Unknown]
  - Diabetes insipidus [Unknown]
  - Eczema [Recovered/Resolved]
  - Seizure [Unknown]
  - Sleep apnoea syndrome [Unknown]
  - Hypophysitis [Not Recovered/Not Resolved]
  - Pyrexia [Unknown]
  - Inappropriate antidiuretic hormone secretion [Unknown]
  - Gingival bleeding [Recovered/Resolved]
  - Myoclonus [Unknown]
  - Activated partial thromboplastin time prolonged [Not Recovered/Not Resolved]
  - Vascular device infection [Unknown]

NARRATIVE: CASE EVENT DATE: 20180817
